FAERS Safety Report 9350807 (Version 3)
Quarter: 2013Q3

REPORT INFORMATION
  Report Type: Spontaneous
  Country: JP (occurrence: JP)
  Receive Date: 20130617
  Receipt Date: 20130725
  Transmission Date: 20140515
  Serious: Yes (Hospitalization)
  Sender: FDA-Public Use
  Company Number: PHHY2013JP060772

PATIENT
  Age: 80 Year
  Sex: Male

DRUGS (1)
  1. EXFORGE [Suspect]
     Indication: HYPERTENSION
     Dosage: UNK
     Route: 048
     Dates: start: 2011

REACTIONS (14)
  - Pneumonia [Recovered/Resolved]
  - Cough [Recovering/Resolving]
  - Chest X-ray abnormal [Recovering/Resolving]
  - Lymphocyte stimulation test positive [Unknown]
  - Hypoxia [Unknown]
  - C-reactive protein increased [Unknown]
  - Oxygen saturation decreased [Unknown]
  - Crepitations [Unknown]
  - CD4/CD8 ratio decreased [Unknown]
  - Aspartate aminotransferase increased [Unknown]
  - Blood lactate dehydrogenase increased [Unknown]
  - Cell marker increased [Unknown]
  - Surfactant protein increased [Unknown]
  - Lymphocyte percentage increased [Unknown]
